FAERS Safety Report 10089092 (Version 1)
Quarter: 2014Q2

REPORT INFORMATION
  Report Type: Spontaneous
  Country: GB (occurrence: GB)
  Receive Date: 20140421
  Receipt Date: 20140421
  Transmission Date: 20141212
  Serious: Yes (Other)
  Sender: FDA-Public Use
  Company Number: GB-MYLANLABS-2014S1008104

PATIENT
  Age: 48 Year
  Sex: Female
  Weight: 68 kg

DRUGS (11)
  1. BUSPIRONE HYDROCHLORIDE [Suspect]
     Dates: start: 20140130
  2. BUPRENORPHINE [Concomitant]
     Dates: start: 20131224
  3. DOMPERIDONE [Concomitant]
     Dates: start: 20140121, end: 20140218
  4. DOMPERIDONE [Concomitant]
     Dates: start: 20131224
  5. DULCOLAX /00064401/ [Concomitant]
     Dates: start: 20131218, end: 20140115
  6. ISPAGHULA HUSK [Concomitant]
     Dates: start: 20131218, end: 20131230
  7. LANSOPRAZOLE [Concomitant]
     Dates: start: 20131108
  8. MEBEVERINE HYDROCHLORIDE [Concomitant]
     Dates: start: 20131224
  9. SALBUTAMOL [Concomitant]
     Dates: start: 20131224
  10. SALMETEROL [Concomitant]
     Dates: start: 20140313
  11. SERTRALINE [Concomitant]
     Dates: start: 20131224

REACTIONS (2)
  - Gastrooesophageal reflux disease [Recovered/Resolved]
  - Oesophagitis [Recovered/Resolved]
